FAERS Safety Report 4786881-0 (Version None)
Quarter: 2005Q3

REPORT INFORMATION
  Report Type: 
  Country: None (occurrence: None)
  Receive Date: 20050930
  Receipt Date: 20050930
  Transmission Date: 20060218
  Serious: Yes (Hospitalization)
  Sender: FDA-Public Use
  Company Number: None

PATIENT
  Sex: Male
  Weight: 83.0083 kg

DRUGS (11)
  1. DOCETAXEL [Suspect]
     Indication: METASTATIC MALIGNANT MELANOMA
     Dosage: 65 MG/M2 IV Q 3 WEEKS
     Route: 042
     Dates: start: 20050516, end: 20050829
  2. OXALIPLATIN [Suspect]
     Dosage: 65 MG/M2 IV Q 3 WEEKS
     Route: 042
     Dates: start: 20050517, end: 20050830
  3. DIGITEK [Concomitant]
  4. LIPITOR [Concomitant]
  5. CELEBREX [Concomitant]
  6. COUMADIN [Concomitant]
  7. POTASSIUM CHLORIDE [Concomitant]
  8. LASIX [Concomitant]
  9. PROCRIT [Concomitant]
  10. PREVACID [Concomitant]
  11. HYDROCHLOROTHIAZIDE [Concomitant]

REACTIONS (4)
  - DYSPNOEA EXERTIONAL [None]
  - OEDEMA PERIPHERAL [None]
  - ORTHOPNOEA [None]
  - PITTING OEDEMA [None]
